FAERS Safety Report 12712657 (Version 1)
Quarter: 2016Q3

REPORT INFORMATION
  Report Type: Spontaneous
  Country: US (occurrence: US)
  Receive Date: 20160902
  Receipt Date: 20160902
  Transmission Date: 20161109
  Serious: Yes (Hospitalization, Other)
  Sender: FDA-Public Use
  Company Number: US-ALLERGAN-1667480US

PATIENT
  Age: 61 Year
  Sex: Female

DRUGS (1)
  1. KADIAN [Suspect]
     Active Substance: MORPHINE SULFATE
     Indication: PRODUCT USED FOR UNKNOWN INDICATION

REACTIONS (13)
  - Restless legs syndrome [Unknown]
  - Swelling [Unknown]
  - Visual acuity reduced [Unknown]
  - Breath sounds abnormal [Unknown]
  - Cough [Unknown]
  - Diarrhoea [Unknown]
  - Dyspnoea [Unknown]
  - Malaise [Unknown]
  - Vomiting [Unknown]
  - Peripheral swelling [Unknown]
  - Confusional state [Unknown]
  - Cardiac failure congestive [Unknown]
  - Anxiety [Unknown]
